FAERS Safety Report 8676978 (Version 2)
Quarter: 2013Q4

REPORT INFORMATION
  Report Type: Spontaneous
  Country: DE (occurrence: DE)
  Receive Date: 20120723
  Receipt Date: 20131101
  Transmission Date: 20140711
  Serious: Yes (Other)
  Sender: FDA-Public Use
  Company Number: DE-009507513-1207DEU005467

PATIENT
  Age: 47 Year
  Sex: Female

DRUGS (10)
  1. MIRTAZAPIN STADA [Suspect]
     Dosage: 15 MG, QD
     Route: 048
     Dates: start: 20120330, end: 20120402
  2. MIRTAZAPIN STADA [Suspect]
     Dosage: 30 MG, QD
     Route: 048
     Dates: start: 20120403, end: 20120411
  3. MIRTAZAPIN STADA [Suspect]
     Dosage: 15 MG, QD
     Route: 048
     Dates: start: 20120412, end: 20120416
  4. SEROQUEL [Concomitant]
     Dosage: 100 MG, QD
     Route: 048
     Dates: start: 20120322, end: 20120325
  5. SEROQUEL [Concomitant]
     Dosage: 150 MG, QD
     Route: 048
     Dates: start: 20120326, end: 20120328
  6. SEROQUEL [Concomitant]
     Dosage: 200 MG, QD
     Route: 048
     Dates: start: 20120329, end: 20120329
  7. SEROQUEL [Concomitant]
     Dosage: 250 MG, QD
     Route: 048
     Dates: start: 20120330, end: 20120402
  8. SEROQUEL [Concomitant]
     Dosage: 225 MG, QD
     Route: 048
     Dates: start: 20120403, end: 20120413
  9. SEROQUEL [Concomitant]
     Dosage: 300 MG, QD
     Route: 048
     Dates: start: 20120414
  10. PANTOZOL [Concomitant]
     Dosage: 20 MG, QD
     Route: 048
     Dates: start: 20120401

REACTIONS (1)
  - Restless legs syndrome [Recovered/Resolved]
